FAERS Safety Report 23793682 (Version 1)
Quarter: 2024Q2

REPORT INFORMATION
  Report Type: Spontaneous
  Country: US (occurrence: None)
  Receive Date: 20240426
  Receipt Date: 20240426
  Transmission Date: 20240715
  Serious: No
  Sender: FDA-Public Use
  Company Number: None

PATIENT
  Age: 62 Year
  Sex: Female

DRUGS (11)
  1. DUPIXENT [Suspect]
     Active Substance: DUPILUMAB
     Indication: Asthma
     Dosage: FREQUENCY : EVERY OTHER WEEK;?
     Route: 058
     Dates: start: 20230307
  2. ALREX [Concomitant]
     Active Substance: LOTEPREDNOL ETABONATE
  3. BUSPIRONE [Concomitant]
     Active Substance: BUSPIRONE HYDROCHLORIDE
  4. CETIRIZINE [Concomitant]
     Active Substance: CETIRIZINE HYDROCHLORIDE
  5. DICYCLOMINE [Concomitant]
     Active Substance: DICYCLOMINE HYDROCHLORIDE
  6. DILTIAZEM [Concomitant]
     Active Substance: DILTIAZEM
  7. DULOXETINE [Concomitant]
     Active Substance: DULOXETINE
  8. ESOMEPRAZOLE [Concomitant]
     Active Substance: ESOMEPRAZOLE
  9. FERROUS SULFATE [Concomitant]
     Active Substance: FERROUS SULFATE
  10. FIBER THERAPY (CALCIUM POLYCARBOPHIL) [Concomitant]
     Active Substance: CALCIUM POLYCARBOPHIL
  11. GABPENTIN [Concomitant]

REACTIONS (2)
  - Drug ineffective [None]
  - Asthma [None]

NARRATIVE: CASE EVENT DATE: 20240111
